FAERS Safety Report 8118531-X (Version None)
Quarter: 2012Q1

REPORT INFORMATION
  Report Type: 
  Country: None (occurrence: None)
  Receive Date: 20120202
  Receipt Date: 20120120
  Transmission Date: 20120608
  Serious: Yes (Death, Life-Threatening, Hospitalization, Other)
  Sender: FDA-Public Use
  Company Number: 2012MA000985

PATIENT
  Sex: Female
  Weight: 73.1198 kg

DRUGS (10)
  1. COUMADIN [Concomitant]
  2. DIGOXIN [Suspect]
     Dosage: 0.25 MG; QD; PO
     Route: 048
     Dates: start: 20060725, end: 20071010
  3. DYAZIDE [Concomitant]
  4. CRESTOR [Concomitant]
  5. NORVASC [Concomitant]
  6. MICARDIS [Concomitant]
  7. BEXTRA [Concomitant]
  8. TRICOR [Concomitant]
  9. FUROSEMIDE [Concomitant]
  10. HYDRALAZINE HCL [Concomitant]

REACTIONS (27)
  - ABDOMINAL HERNIA OBSTRUCTIVE [None]
  - ORTHOPNOEA [None]
  - VOMITING [None]
  - DRY MOUTH [None]
  - INTESTINAL OBSTRUCTION [None]
  - ATRIAL FIBRILLATION [None]
  - PALPITATIONS [None]
  - CARDIAC ARREST [None]
  - ASTHENIA [None]
  - DEHYDRATION [None]
  - DYSPNOEA EXERTIONAL [None]
  - SKIN DISCOLOURATION [None]
  - CARDIOMEGALY [None]
  - NAUSEA [None]
  - OEDEMA PERIPHERAL [None]
  - UNRESPONSIVE TO STIMULI [None]
  - BLOOD PRESSURE SYSTOLIC INCREASED [None]
  - FATIGUE [None]
  - NASAL CONGESTION [None]
  - CARDIAC MURMUR [None]
  - WEIGHT INCREASED [None]
  - CHEST PAIN [None]
  - PROTHROMBIN TIME PROLONGED [None]
  - PLEURAL EFFUSION [None]
  - DIZZINESS POSTURAL [None]
  - MYALGIA [None]
  - HEART RATE IRREGULAR [None]
